FAERS Safety Report 5531279-0 (Version None)
Quarter: 2007Q4

REPORT INFORMATION
  Report Type: 
  Country: None (occurrence: None)
  Receive Date: 20071127
  Receipt Date: 20071112
  Transmission Date: 20080405
  Serious: Yes (Hospitalization)
  Sender: FDA-Public Use
  Company Number: DSA_30910_2007

PATIENT
  Sex: Female

DRUGS (3)
  1. LORAZEPAM [Suspect]
     Dosage: 10 MG 1X ORAL
     Route: 048
     Dates: start: 20071112, end: 20071112
  2. RISPERDAL [Suspect]
     Dosage: 15 MG 1X NOT THE PRESCRIBED AMOUNT. ORAL
     Route: 048
     Dates: start: 20071112, end: 20071112
  3. ZOLOFT [Suspect]
     Dosage: 20 MG 1X NOT THE PRESCRIBED AMOUNT. ORAL
     Route: 048
     Dates: start: 20071112, end: 20071112

REACTIONS (3)
  - MULTIPLE DRUG OVERDOSE INTENTIONAL [None]
  - RESTLESSNESS [None]
  - SUICIDE ATTEMPT [None]
